FAERS Safety Report 9921442 (Version 1)
Quarter: 2014Q1

REPORT INFORMATION
  Report Type: Spontaneous
  Country: US (occurrence: US)
  Receive Date: 20140225
  Receipt Date: 20140225
  Transmission Date: 20141002
  Serious: Yes (Hospitalization)
  Sender: FDA-Public Use
  Company Number: US-ASTRAZENECA-2014SE11569

PATIENT
  Age: 56 Year
  Sex: Female
  Weight: 84.8 kg

DRUGS (4)
  1. SYMBICORT [Suspect]
     Indication: CHRONIC OBSTRUCTIVE PULMONARY DISEASE
     Dosage: 160 4.5 MCG 2 PUFFS BID
     Route: 055
     Dates: start: 2009
  2. OMEPRAZOLE [Suspect]
     Indication: GASTROOESOPHAGEAL REFLUX DISEASE
     Route: 048
  3. MULTIVITES WMENS ONE A DAY [Concomitant]
     Indication: VITAMIN SUPPLEMENTATION
     Dosage: DAILY
  4. FISH OIL [Concomitant]

REACTIONS (4)
  - Pneumonia [Recovered/Resolved with Sequelae]
  - Vocal cord disorder [Not Recovered/Not Resolved]
  - Laryngitis [Not Recovered/Not Resolved]
  - Cough [Not Recovered/Not Resolved]
